FAERS Safety Report 5959949-0 (Version None)
Quarter: 2008Q4

REPORT INFORMATION
  Report Type: 
  Country: None (occurrence: None)
  Receive Date: 20081119
  Receipt Date: 20081119
  Transmission Date: 20090506
  Serious: No
  Sender: FDA-Public Use
  Company Number: None

PATIENT
  Age: 38 Year
  Sex: Male
  Weight: 54 kg

DRUGS (5)
  1. ZOSYN [Suspect]
     Indication: WOUND INFECTION
     Dosage: 4.5 GM IV Q 6 HOURS
     Route: 042
     Dates: start: 20080914
  2. INSULIN [Concomitant]
  3. HEPARIN [Concomitant]
  4. HYDROMORPHONE HCL [Concomitant]
  5. OCTREOTIDE ACETATE [Concomitant]

REACTIONS (3)
  - HAEMOGLOBIN DECREASED [None]
  - PLATELET COUNT DECREASED [None]
  - WHITE BLOOD CELL COUNT DECREASED [None]
